FAERS Safety Report 5905185-3 (Version None)
Quarter: 2008Q4

REPORT INFORMATION
  Report Type: 
  Country: None (occurrence: None)
  Receive Date: 20081001
  Receipt Date: 20080916
  Transmission Date: 20090506
  Serious: Yes (Other)
  Sender: FDA-Public Use
  Company Number: JP-GENENTECH-260804

PATIENT
  Sex: Male

DRUGS (6)
  1. AVASTIN [Suspect]
     Indication: RECTAL CANCER RECURRENT
     Dosage: 10 MG/KG, Q2W
     Route: 041
     Dates: start: 20071031, end: 20080228
  2. OXALIPLATIN [Suspect]
     Indication: RECTAL CANCER RECURRENT
     Dosage: 120 MG, QD
     Route: 041
     Dates: start: 20080117, end: 20080227
  3. FLUOROURACIL [Suspect]
     Indication: RECTAL CANCER RECURRENT
     Dosage: 700 MG, QD
     Route: 042
     Dates: start: 20071030, end: 20080228
  4. LEUCOVORIN CALCIUM [Suspect]
     Indication: RECTAL CANCER RECURRENT
     Dosage: 125 MG, QD
     Route: 041
     Dates: start: 20080117, end: 20080227
  5. KYTRIL [Concomitant]
     Indication: DRUG USE FOR UNKNOWN INDICATION
     Dosage: 3 MG, UNK
     Dates: start: 20071031, end: 20080228
  6. DEXAMETHASONE SODIUM PHOSPHATE [Concomitant]
     Indication: DRUG USE FOR UNKNOWN INDICATION
     Dosage: 8 MG, UNK
     Dates: start: 20071031, end: 20080228

REACTIONS (3)
  - PLATELET COUNT DECREASED [None]
  - RASH GENERALISED [None]
  - WHITE BLOOD CELL COUNT DECREASED [None]
